FAERS Safety Report 7320828-8 (Version None)
Quarter: 2011Q1

REPORT INFORMATION
  Report Type: 
  Country: None (occurrence: None)
  Receive Date: 20110121
  Receipt Date: 20100617
  Transmission Date: 20110831
  Serious: Yes (Other)
  Sender: FDA-Public Use
  Company Number: SOLV00210002848

PATIENT
  Age: 66 Year
  Sex: Female

DRUGS (1)
  1. PROMETRIUM [Suspect]
     Indication: HORMONE REPLACEMENT THERAPY
     Dosage: 100 MILLIGRAM(S) QD ORAL DAILY DOSE: 100 MILLIGRAM(S)
     Route: 048

REACTIONS (1)
  - ENDOMETRIAL HYPERPLASIA [None]
